FAERS Safety Report 17669597 (Version 3)
Quarter: 2020Q2

REPORT INFORMATION
  Report Type: Spontaneous
  Country: JP (occurrence: JP)
  Receive Date: 20200415
  Receipt Date: 20200504
  Transmission Date: 20200713
  Serious: Yes (Death, Other)
  Sender: FDA-Public Use
  Company Number: JP-SAKK-2020SA095314AA

PATIENT
  Age: 78 Year
  Sex: Male
  Weight: 65.5 kg

DRUGS (2)
  1. JEVTANA [Suspect]
     Active Substance: CABAZITAXEL
     Indication: PROSTATE CANCER
     Dosage: DAILY DOSE: 40 MG
     Route: 041
     Dates: start: 20200402
  2. PREDONINE [PREDNISOLONE ACETATE] [Concomitant]
     Active Substance: PREDNISOLONE ACETATE
     Indication: PRODUCT USED FOR UNKNOWN INDICATION
     Route: 065

REACTIONS (4)
  - Depressed level of consciousness [Fatal]
  - Fall [Fatal]
  - Death [Fatal]
  - Dysarthria [Fatal]

NARRATIVE: CASE EVENT DATE: 20200410
